FAERS Safety Report 9714193 (Version 2)
Quarter: 2013Q4

REPORT INFORMATION
  Report Type: Spontaneous
  Country: US (occurrence: None)
  Receive Date: 20131122
  Receipt Date: 20131129
  Transmission Date: 20140711
  Serious: Yes (Hospitalization)
  Sender: FDA-Public Use
  Company Number: 2013-1796

PATIENT
  Age: 67 Year
  Sex: Male
  Weight: 79.83 kg

DRUGS (14)
  1. CARFILZOMIB [Suspect]
     Indication: PLASMA CELL MYELOMA
     Dosage: (38.8 MG, CYCLE 1, DAY 1), INTRAVENOUS?
     Route: 042
     Dates: start: 20131030, end: 20131030
  2. DEXAMETHASONE [Suspect]
     Indication: PLASMA CELL MYELOMA
     Dosage: (40 MG, DAYS 1,8,15,22 EVERY 28 DAYS), INTRAVENOUS
     Route: 042
     Dates: start: 20131030
  3. ACYCLOVIR (ACICLOVIR) (ACICLOVIR) [Concomitant]
  4. ZOMETA (ZOLEDRONIC ACID) (ZOLEDRONIC ACID) [Concomitant]
  5. TRAMADOL (TRAMADOL) (TRAMADOL) [Concomitant]
  6. ZYRTEC (CETIRIZINE HYDROCHLORIDE) (CETIRIZINE HYDROCHLORIDE) [Concomitant]
  7. LEXAPRO (ESCITALOPRAM OXALATE) (ESCITALOPRAM OXALATE) [Concomitant]
  8. MEDROL (METHYLPREDNISOLONE) (METHYLPREDNISOLONE) [Concomitant]
  9. LOW DOSE ASPIRIN (ACETYLSALICYLIC ACID) (ACETYLSALICYLIC ACID) [Concomitant]
  10. MEGA RED OMEGA (OMEGA-3 FATTY ACIDS) (OMEGA-3 FATTY ACIDS) [Concomitant]
  11. CENTRUM SILVER (ASCORBIC ACID, PYRIDOXINE HYDROCHLORIDE, COLECALCIFEROL, CYANOCOBALAMIN, RETINOL, RIBOFLAVN, PHYROMENADIONE, NICOTINAMIDE, CALCIUM PANTOTHENATE, IRON, MAGNESIUM, MANGANESE, MOLYBDENUM, NICKEL, POTASSIUM, CHROMIUM, COPPER, VANADIN, ZINC, C [Concomitant]
  12. ALPHA LOPEIC ACID (THIOCTIC ACID) (THIOCTIC ACID) [Concomitant]
  13. LANSOPRAZOLE (LANSOPRAZOLE) (LANSOPRAZOLE) [Concomitant]
  14. STOOL SOFTENER (DOCUSATE SODIUM) (DOCUSATE SODIUM0 [Concomitant]

REACTIONS (5)
  - Hypoxia [None]
  - Pyrexia [None]
  - Pneumonitis [None]
  - Cough [None]
  - Dyspnoea [None]
